FAERS Safety Report 9394373 (Version 4)
Quarter: 2014Q4

REPORT INFORMATION
  Report Type: Spontaneous
  Country: JP (occurrence: JP)
  Receive Date: 20130711
  Receipt Date: 20141103
  Transmission Date: 20150529
  Serious: Yes (Life-Threatening, Hospitalization, Other)
  Sender: FDA-Public Use
  Company Number: JP-ROCHE-1246402

PATIENT
  Age: 44 Year
  Sex: Male
  Weight: 57 kg

DRUGS (10)
  1. NEORAL [Concomitant]
     Active Substance: CYCLOSPORINE
     Indication: PROPHYLAXIS AGAINST TRANSPLANT REJECTION
     Route: 048
     Dates: start: 20120718
  2. CELLCEPT [Suspect]
     Active Substance: MYCOPHENOLATE MOFETIL\MYCOPHENOLATE MOFETIL HYDROCHLORIDE
     Indication: PROPHYLAXIS AGAINST TRANSPLANT REJECTION
     Dosage: DOSE REDUCED
     Route: 048
     Dates: start: 20031013
  3. BASEN (JAPAN) [Concomitant]
     Indication: DIABETES MELLITUS
     Route: 048
  4. HERBESSER [Concomitant]
     Active Substance: DILTIAZEM HYDROCHLORIDE
     Indication: ARRHYTHMIA
     Route: 048
  5. PROMAC (JAPAN) [Concomitant]
     Indication: GASTRIC ULCER
     Dosage: OTHER PURPOSES: TUNICA MUCOSA PROTECTION
     Route: 048
  6. SANDIMMUNE [Concomitant]
     Active Substance: CYCLOSPORINE
     Indication: PROPHYLAXIS AGAINST TRANSPLANT REJECTION
     Route: 041
     Dates: start: 20120711, end: 20120718
  7. PROGRAF [Concomitant]
     Active Substance: TACROLIMUS\TACROLIMUS ANHYDROUS
     Indication: PROPHYLAXIS AGAINST TRANSPLANT REJECTION
     Route: 048
     Dates: start: 200310, end: 20120711
  8. PREDNISOLONE. [Concomitant]
     Active Substance: PREDNISOLONE
     Indication: PROPHYLAXIS AGAINST TRANSPLANT REJECTION
     Dosage: DOSAGE  UNCERTAIN.
     Route: 065
     Dates: start: 2003
  9. NORVASC [Concomitant]
     Active Substance: AMLODIPINE BESYLATE
     Indication: HYPERTENSION
     Route: 048
  10. CELLCEPT [Suspect]
     Active Substance: MYCOPHENOLATE MOFETIL\MYCOPHENOLATE MOFETIL HYDROCHLORIDE
     Indication: PROPHYLAXIS AGAINST TRANSPLANT REJECTION
     Route: 048
     Dates: end: 20120701

REACTIONS (6)
  - Enterocolitis [Unknown]
  - Lower gastrointestinal haemorrhage [Recovered/Resolved]
  - Renal cancer [Unknown]
  - Melaena [Unknown]
  - Shock haemorrhagic [Unknown]
  - Anastomotic stenosis [Unknown]

NARRATIVE: CASE EVENT DATE: 20031209
